FAERS Safety Report 9559362 (Version 3)
Quarter: 2014Q2

REPORT INFORMATION
  Report Type: Spontaneous
  Country: US (occurrence: None)
  Receive Date: 20130925
  Receipt Date: 20140407
  Transmission Date: 20141212
  Serious: Yes (Other)
  Sender: FDA-Public Use
  Company Number: 2013-US-000948

PATIENT
  Age: 25 Year
  Sex: Male

DRUGS (1)
  1. XYREM [Suspect]
     Indication: NARCOLEPSY
     Dosage: 2.25 G, BID FOR 1WK/3.0 G, BID FOR 2WKS/3.75, BID, ORAL
     Route: 048
     Dates: start: 20130626, end: 2013

REACTIONS (7)
  - Heart rate increased [None]
  - Blood pressure increased [None]
  - Asthenia [None]
  - Insomnia [None]
  - Viral upper respiratory tract infection [None]
  - Decreased activity [None]
  - Tachycardia [None]
